FAERS Safety Report 25484521 (Version 1)
Quarter: 2025Q2

REPORT INFORMATION
  Report Type: Spontaneous
  Country: US (occurrence: None)
  Receive Date: 20250627
  Receipt Date: 20250627
  Transmission Date: 20250717
  Serious: Yes (Hospitalization)
  Sender: FDA-CTU
  Company Number: None

PATIENT
  Age: 12 Year
  Sex: Female
  Weight: 46.4 kg

DRUGS (3)
  1. CARBOPLATIN [Suspect]
     Active Substance: CARBOPLATIN
     Dates: start: 20250331, end: 20250604
  2. PEGFILGRASTIM [Suspect]
     Active Substance: PEGFILGRASTIM
  3. ETOPOSIDE [Suspect]
     Active Substance: ETOPOSIDE
     Dates: end: 20250606

REACTIONS (8)
  - Pyrexia [None]
  - Dizziness [None]
  - Hypoaesthesia [None]
  - Paraesthesia [None]
  - Livedo reticularis [None]
  - Tachycardia [None]
  - Hypotension [None]
  - Shock [None]

NARRATIVE: CASE EVENT DATE: 20250609
